FAERS Safety Report 9030842 (Version 2)
Quarter: 2013Q1

REPORT INFORMATION
  Report Type: Spontaneous
  Country: US (occurrence: US)
  Receive Date: 20130123
  Receipt Date: 20130225
  Transmission Date: 20140127
  Serious: Yes (Other)
  Sender: FDA-Public Use
  Company Number: US-BAYER-2013-008716

PATIENT
  Age: 30 Year
  Sex: Female
  Weight: 70.75 kg

DRUGS (2)
  1. MIRENA [Suspect]
     Indication: CONTRACEPTION
     Dosage: 20 MCG/24HR, CONT
     Route: 015
     Dates: start: 20130116, end: 20130116
  2. MIRENA [Suspect]
     Indication: MENORRHAGIA

REACTIONS (2)
  - Device dislocation [Recovered/Resolved]
  - Complication of device insertion [Recovered/Resolved]
